FAERS Safety Report 4967225-8 (Version None)
Quarter: 2006Q2

REPORT INFORMATION
  Report Type: 
  Country: None (occurrence: None)
  Receive Date: 20060410
  Receipt Date: 20050210
  Transmission Date: 20061013
  Serious: Yes (Other)
  Sender: FDA-Public Use
  Company Number: PHHO2005CA02681

PATIENT
  Age: 42 Year
  Sex: Female

DRUGS (15)
  1. SANDOSTATIN LAR [Suspect]
     Indication: NEUROENDOCRINE TUMOUR
     Dosage: 20 MG, EVERY 2 WEEKS
     Dates: start: 20041217
  2. SANDOSTATIN LAR [Suspect]
     Dosage: 30MG, EVERY 2 WEEKS
  3. CELEXA [Concomitant]
  4. WELLBUTRIN [Concomitant]
  5. SENNOSIDE [Concomitant]
  6. HYDROMORPHONE [Concomitant]
  7. DILAUDID [Concomitant]
  8. NOVO-DOCUSATE [Concomitant]
  9. NOVO-TEMAZEPAM [Concomitant]
  10. KYTRIL [Concomitant]
  11. SANDOSTATIN [Suspect]
     Route: 058
  12. DURAGESIC-100 [Concomitant]
     Dosage: 50MG
  13. DURAGESIC-100 [Concomitant]
     Dosage: 100MG
  14. RESTORIL [Concomitant]
  15. COLACE [Concomitant]

REACTIONS (17)
  - ASTHENIA [None]
  - CONVULSION [None]
  - DECREASED APPETITE [None]
  - DIARRHOEA [None]
  - DYSPNOEA [None]
  - FATIGUE [None]
  - GASTRITIS [None]
  - GASTROINTESTINAL PAIN [None]
  - HOT FLUSH [None]
  - HYPERHIDROSIS [None]
  - HYPERSOMNIA [None]
  - HYPOTENSION [None]
  - LOSS OF CONSCIOUSNESS [None]
  - MIGRAINE [None]
  - MUSCLE SPASMS [None]
  - NAUSEA [None]
  - PAIN [None]
